FAERS Safety Report 6626058-7 (Version None)
Quarter: 2010Q1

REPORT INFORMATION
  Report Type: 
  Country: None (occurrence: None)
  Receive Date: 20100310
  Receipt Date: 20100303
  Transmission Date: 20100710
  Serious: Yes (Life-Threatening, Hospitalization, Other)
  Sender: FDA-Public Use
  Company Number: A0838325A

PATIENT
  Age: 50 Year
  Sex: Female

DRUGS (3)
  1. LAMICTAL CD [Suspect]
     Indication: BIPOLAR DISORDER
     Dosage: 9600MG SINGLE DOSE
     Route: 048
  2. ZOLOFT [Concomitant]
     Dosage: 50MG AT NIGHT
     Route: 048
     Dates: start: 20100115
  3. AMBIEN [Concomitant]
     Dates: end: 20100107

REACTIONS (5)
  - HYPERHIDROSIS [None]
  - INTENTIONAL OVERDOSE [None]
  - SLEEP DISORDER [None]
  - SUICIDAL IDEATION [None]
  - SUICIDE ATTEMPT [None]
